FAERS Safety Report 9113641 (Version 1)
Quarter: 2013Q1

REPORT INFORMATION
  Report Type: Spontaneous
  Country: US (occurrence: US)
  Receive Date: 20130208
  Receipt Date: 20130208
  Transmission Date: 20140127
  Serious: Yes (Death)
  Sender: FDA-Public Use
  Company Number: CHPA2013US002527

PATIENT
  Age: 64 Year
  Sex: Female

DRUGS (20)
  1. LANSOPRAZOLE [Suspect]
     Dosage: UNK, UNK
     Route: 048
  2. DESIPRAMINE [Suspect]
     Dosage: UNK, UNK
     Route: 048
  3. DILTIAZEM ER [Suspect]
     Dosage: UNK, UNK
     Route: 048
  4. VENLAFAXINE [Suspect]
     Dosage: UNK, UNK
     Route: 048
  5. LAMOTRIGINE [Suspect]
     Dosage: UNK, UNK
     Route: 048
  6. HYDROCHLOROTHIAZIDE [Suspect]
     Dosage: UNK, UNK
     Route: 048
  7. ARMODAFINIL [Suspect]
     Dosage: UNK, UNK
     Route: 048
  8. POTASSIUM CHLORIDE [Suspect]
     Dosage: UNK, UNK
     Route: 048
  9. TRIFLUOPERAZINE [Suspect]
     Dosage: UNK, UNK
     Route: 048
  10. ESCITALOPRAM [Suspect]
     Dosage: UNK, UNK
     Route: 048
  11. THYROID PREPARATIONS [Suspect]
     Dosage: UNK, UNK
     Route: 048
  12. PANTOPRAZOLE [Suspect]
     Dosage: UNK, UNK
     Route: 048
  13. NAPROXEN [Suspect]
     Dosage: UNK, UNK
     Route: 048
  14. NITROFURANTOIN [Suspect]
     Dosage: UNK, UNK
     Route: 048
  15. DICLOFENAC [Suspect]
     Dosage: UNK, UNK
     Route: 048
  16. ACETAMINOPHEN W/HYDROCODONE [Suspect]
     Dosage: UNK, UNK
     Route: 048
  17. ACETAMINOPHEN W/PROPOXYPHENE [Suspect]
     Dosage: UNK, UNK
     Route: 048
  18. SOLIFENACIN [Suspect]
     Dosage: UNK, UNK
     Route: 048
  19. CIPROFLOXACIN [Suspect]
     Dosage: UNK, UNK
     Route: 048
  20. PROGESTIN [Suspect]
     Dosage: UNK, UNK
     Route: 048

REACTIONS (1)
  - Completed suicide [Fatal]
